FAERS Safety Report 17702425 (Version 1)
Quarter: 2020Q2

REPORT INFORMATION
  Report Type: Spontaneous
  Country: US (occurrence: US)
  Receive Date: 20200423
  Receipt Date: 20200423
  Transmission Date: 20200714
  Serious: Yes (Other)
  Sender: FDA-Public Use
  Company Number: US-ELI_LILLY_AND_COMPANY-US202004007680

PATIENT
  Sex: Male

DRUGS (3)
  1. TOPAMAX [Concomitant]
     Active Substance: TOPIRAMATE
     Dosage: 50 MG, UNKNOWN
     Route: 065
  2. TOPAMAX [Concomitant]
     Active Substance: TOPIRAMATE
     Indication: MIGRAINE
     Dosage: 25 MG, UNKNOWN
     Route: 065
     Dates: start: 20200411
  3. EMGALITY [Suspect]
     Active Substance: GALCANEZUMAB-GNLM
     Indication: CLUSTER HEADACHE
     Dosage: 120 MG, UNKNOWN
     Route: 058
     Dates: start: 201903

REACTIONS (3)
  - Suicidal behaviour [Unknown]
  - Cluster headache [Unknown]
  - Drug ineffective [Unknown]
